FAERS Safety Report 10032239 (Version 1)
Quarter: 2014Q1

REPORT INFORMATION
  Report Type: Spontaneous
  Country: MX (occurrence: MX)
  Receive Date: 20140324
  Receipt Date: 20140324
  Transmission Date: 20141002
  Serious: Yes (Hospitalization, Other)
  Sender: FDA-Public Use
  Company Number: MX-TEVA-468750ISR

PATIENT
  Age: 22 Year
  Sex: Male
  Weight: 69 kg

DRUGS (15)
  1. CLINDAMYCIN [Suspect]
     Indication: TONSILLITIS
     Dosage: 1800 MG/DAY
     Route: 065
  2. PEGFILGRASTIM [Suspect]
     Dosage: 6MG
     Route: 065
  3. AMBROXOL [Concomitant]
     Indication: COUGH
     Route: 065
  4. CLENBUTEROL [Concomitant]
     Indication: COUGH
     Route: 065
  5. METRONIDAZOLE [Concomitant]
     Dosage: 1500 MILLIGRAM DAILY;
     Route: 042
  6. MEROPENEM [Concomitant]
     Dosage: 3 GRAM DAILY; FOR 6 DAYS
     Route: 065
  7. AMIKACIN [Concomitant]
     Dosage: 1000 MILLIGRAM DAILY; FOR 6 DAYS
     Route: 065
  8. FLUCONAZOLE [Concomitant]
     Indication: PROPHYLAXIS
     Dosage: FOR 5 DAYS
     Route: 065
  9. NYSTATIN [Concomitant]
     Indication: PROPHYLAXIS
     Dosage: FOR 5 DAYS
     Route: 048
  10. PARACETAMOL [Concomitant]
     Indication: PYREXIA
     Route: 065
  11. KETOPROFEN [Concomitant]
     Indication: ANALGESIC THERAPY
     Route: 065
  12. BENZONATATE [Concomitant]
     Indication: COUGH
     Route: 065
  13. IPRATROPIUM BROMIDE [Concomitant]
     Indication: COUGH
     Route: 065
  14. BUDESONIDE [Concomitant]
     Indication: COUGH
     Route: 065
  15. OMEPRAZOLE [Concomitant]
     Route: 065

REACTIONS (3)
  - Pancytopenia [Recovered/Resolved]
  - Bone pain [Unknown]
  - Phlebitis [Unknown]
